FAERS Safety Report 11125841 (Version 1)
Quarter: 2015Q2

REPORT INFORMATION
  Report Type: Report from Study
  Country: US (occurrence: US)
  Receive Date: 20150520
  Receipt Date: 20150520
  Transmission Date: 20150821
  Serious: No
  Sender: FDA-Public Use
  Company Number: US-AMGEN-USASL2015046885

PATIENT
  Age: 81 Year
  Sex: Male

DRUGS (1)
  1. ENBREL [Suspect]
     Active Substance: ETANERCEPT
     Indication: RHEUMATOID ARTHRITIS
     Dosage: UNK UNK, UNK
     Route: 065
     Dates: start: 20091023

REACTIONS (5)
  - Full blood count abnormal [Unknown]
  - Haemoglobin abnormal [Unknown]
  - Red cell distribution width abnormal [Unknown]
  - Red blood cell count abnormal [Unknown]
  - Haematocrit abnormal [Unknown]
